FAERS Safety Report 13134454 (Version 1)
Quarter: 2017Q1

REPORT INFORMATION
  Report Type: Spontaneous
  Country: US (occurrence: US)
  Receive Date: 20170120
  Receipt Date: 20170120
  Transmission Date: 20170428
  Serious: Yes (Death, Other)
  Sender: FDA-Public Use
  Company Number: US-PFIZER INC-2017025813

PATIENT
  Age: 45 Year
  Sex: Male
  Weight: 61 kg

DRUGS (1)
  1. RAPAMUNE [Suspect]
     Active Substance: SIROLIMUS
     Indication: IMMUNOSUPPRESSANT DRUG THERAPY
     Dosage: 1 MG, UNK
     Route: 048
     Dates: start: 2014

REACTIONS (2)
  - Pneumonia [Fatal]
  - Pleurisy [Unknown]

NARRATIVE: CASE EVENT DATE: 20160102
